FAERS Safety Report 5764247-4 (Version None)
Quarter: 2008Q2

REPORT INFORMATION
  Report Type: 
  Country: None (occurrence: None)
  Receive Date: 20080604
  Receipt Date: 20080521
  Transmission Date: 20081010
  Serious: Yes (Death, Hospitalization)
  Sender: FDA-Public Use
  Company Number: 2008AL005612

PATIENT
  Age: 78 Year
  Sex: Female

DRUGS (9)
  1. DIGOXIN [Suspect]
     Indication: CARDIAC DISORDER
     Dosage: 0.125MG ORAL
     Route: 048
     Dates: start: 20060101
  2. FOSAMAX [Concomitant]
  3. GABAPENTIN [Concomitant]
  4. METFORMIN [Concomitant]
  5. LOPRESSOR [Concomitant]
  6. AVODART [Concomitant]
  7. PREDNISONE TAB [Concomitant]
  8. DILTIAZEM [Concomitant]
  9. ASPIRIN [Concomitant]

REACTIONS (7)
  - BLOOD PRESSURE INCREASED [None]
  - DIZZINESS [None]
  - EMBOLISM [None]
  - HIP FRACTURE [None]
  - NAUSEA [None]
  - THROMBOSIS [None]
  - VOMITING [None]
